FAERS Safety Report 9355460 (Version 1)
Quarter: 2013Q2

REPORT INFORMATION
  Report Type: Spontaneous
  Country: FR (occurrence: FR)
  Receive Date: 20130619
  Receipt Date: 20130619
  Transmission Date: 20140414
  Serious: Yes (Hospitalization)
  Sender: FDA-Public Use
  Company Number: FR-PFIZER INC-2013180550

PATIENT
  Age: 71 Year
  Sex: Male

DRUGS (10)
  1. FLUOROURACILE PFIZER [Suspect]
     Indication: ADENOCARCINOMA
     Dosage: 5180 MG, 1 CYCLE
     Route: 042
     Dates: start: 2012, end: 20120531
  2. IRINOTECAN [Suspect]
     Indication: ADENOCARCINOMA
     Dosage: 335 MG, 1 CYCLE
     Route: 042
     Dates: start: 2012, end: 20120531
  3. AVASTIN [Suspect]
     Indication: ADENOCARCINOMA
     Dosage: 380 MG, 1 CYCLE
     Route: 042
     Dates: start: 2012, end: 20120531
  4. ZOPHREN [Concomitant]
  5. DIPROSONE [Concomitant]
  6. SOLUPRED [Concomitant]
  7. FUNGIZONE [Concomitant]
  8. MOTILYO [Concomitant]
  9. SODIUM BICARBONATE [Concomitant]
  10. KETODERM [Concomitant]

REACTIONS (3)
  - Febrile neutropenia [Recovered/Resolved]
  - Klebsiella infection [Recovered/Resolved]
  - Rash maculo-papular [Not Recovered/Not Resolved]
